FAERS Safety Report 9188331 (Version 3)
Quarter: 2013Q3

REPORT INFORMATION
  Report Type: Report from Study
  Country: US (occurrence: US)
  Receive Date: 20130325
  Receipt Date: 20130725
  Transmission Date: 20140515
  Serious: Yes (Hospitalization)
  Sender: FDA-Public Use
  Company Number: US-PFIZER INC-2013089186

PATIENT
  Age: 37 Year
  Sex: Female
  Weight: 75.3 kg

DRUGS (14)
  1. IRINOTECAN HCL [Suspect]
     Indication: COLORECTAL CANCER METASTATIC
     Dosage: 180 MG/M2, CYCLIC, DAY 1 EVERY 14 DAYS
     Route: 042
     Dates: start: 20120829
  2. FLUOROURACIL [Suspect]
     Indication: COLORECTAL CANCER METASTATIC
     Dosage: 400 MG/M2, CYCLIC, DAY 1 EVERY 14 DAYS
     Route: 040
     Dates: start: 20120829
  3. FLUOROURACIL [Suspect]
     Dosage: 2400 MG/M2, DAYS 1 AND 2 EVERY 14 DAYS
     Route: 042
     Dates: start: 20120829
  4. FOLINIC ACID [Suspect]
     Indication: COLON CANCER METASTATIC
     Dosage: 400 MG/M2, CYCLIC, DAY 1 EVERY 14 DAYS
     Route: 042
     Dates: start: 20120829
  5. BLINDED THERAPY [Suspect]
     Indication: COLORECTAL CANCER METASTATIC
     Dosage: CYCLIC
     Route: 042
     Dates: start: 20120829
  6. BENADRYL [Concomitant]
  7. EMLA [Concomitant]
  8. HYDROCORTISONE [Concomitant]
  9. KCL [Concomitant]
  10. LOTRIMIN [Concomitant]
  11. METHYLPREDNISOLONE [Concomitant]
  12. PROMETHAZINE [Concomitant]
  13. ZOFRAN [Concomitant]
  14. PREDNISONE [Concomitant]
     Dosage: UNK
     Dates: end: 20130305

REACTIONS (1)
  - Non-cardiac chest pain [Recovered/Resolved]
